FAERS Safety Report 8104248-4 (Version None)
Quarter: 2012Q1

REPORT INFORMATION
  Report Type: 
  Country: None (occurrence: None)
  Receive Date: 20120130
  Receipt Date: 20120117
  Transmission Date: 20120608
  Serious: Yes (Life-Threatening, Hospitalization)
  Sender: FDA-Public Use
  Company Number: 1000027054

PATIENT
  Age: 94 Year
  Sex: Female
  Weight: 45 kg

DRUGS (8)
  1. TRAZODONE HYDROCHLORIDE [Suspect]
     Indication: DEPRESSION
     Dosage: 50 MG (50 MG, 1 IN 1 D), ORAL
     Route: 048
     Dates: end: 20111019
  2. ESCITALOPRAM OXALATE [Suspect]
     Indication: DEPRESSION
     Dosage: 5 MG (5 MG, 1 IN 1 D), ORAL
     Route: 048
     Dates: end: 20111019
  3. ACETAMINOPHEN [Concomitant]
  4. LOSARTAN POTASSIUM [Concomitant]
  5. TRAMADOL HCL [Concomitant]
  6. MEMANTINE HYDROCHLORIDE [Concomitant]
  7. FUROSEMIDE [Concomitant]
  8. NITROFURANTOIN [Concomitant]

REACTIONS (8)
  - ATRIAL FIBRILLATION [None]
  - TERMINAL STATE [None]
  - ATRIAL FLUTTER [None]
  - DYSPNOEA [None]
  - CHEST PAIN [None]
  - ELECTROCARDIOGRAM QT PROLONGED [None]
  - HYPOTENSION [None]
  - DRUG INTERACTION [None]
